FAERS Safety Report 5084462-5 (Version None)
Quarter: 2006Q3

REPORT INFORMATION
  Report Type: 
  Country: None (occurrence: None)
  Receive Date: 20060815
  Receipt Date: 20060802
  Transmission Date: 20061208
  Serious: Yes (Hospitalization)
  Sender: FDA-Public Use
  Company Number: SP00935

PATIENT
  Age: 65 Year
  Sex: Female

DRUGS (5)
  1. VISICOL [Suspect]
     Indication: COLONOSCOPY
     Dosage: ^ALL BUT ONE DOSE^, UNKNOWN
     Dates: start: 20060423, end: 20060424
  2. SYNTHROID [Concomitant]
  3. NASACORT [Concomitant]
  4. HYDROCHLOROTHIAZIDE [Concomitant]
  5. TRIAMTERENE [Concomitant]

REACTIONS (3)
  - BLOOD POTASSIUM DECREASED [None]
  - MALAISE [None]
  - NAUSEA [None]
